FAERS Safety Report 9251023 (Version 1)
Quarter: 2013Q1

REPORT INFORMATION
  Report Type: Spontaneous
  Country: US (occurrence: None)
  Receive Date: 20130305
  Receipt Date: 20130305
  Transmission Date: 20140127
  Serious: Yes (Other)
  Sender: FDA-Public Use
  Company Number: 163-21880-12071770

PATIENT
  Age: 72 Year
  Sex: Male
  Weight: 100 kg

DRUGS (6)
  1. REVLIMID [Suspect]
     Indication: PLASMA CELL MYELOMA
     Route: 048
     Dates: start: 20101111, end: 2011
  2. METOPROLOL (METOPROLOL) [Concomitant]
  3. OMEPRAZOLE (OMEPRAAZOLE) [Concomitant]
  4. OXYCODONE (OXYCODONE) [Concomitant]
  5. JANUVIA (SITAGLIPTIN PHOSPHATE) [Concomitant]
  6. OXYCONTIN (OXYCODONE HYDROCHLORIDE) [Concomitant]

REACTIONS (1)
  - Platelet count decreased [None]
